FAERS Safety Report 10358561 (Version 1)
Quarter: 2014Q3

REPORT INFORMATION
  Report Type: Spontaneous
  Country: US (occurrence: US)
  Receive Date: 20140803
  Receipt Date: 20140803
  Transmission Date: 20150326
  Serious: Yes (Hospitalization, Other)
  Sender: FDA-Public Use
  Company Number: US-009507513-1407USA012076

PATIENT
  Age: 77 Year
  Sex: Male
  Weight: 104.31 kg

DRUGS (10)
  1. LEVOTHROID [Concomitant]
     Active Substance: LEVOTHYROXINE SODIUM
     Dosage: 150 MG, DAILY
     Route: 048
  2. PRILOSEC [Concomitant]
     Active Substance: OMEPRAZOLE MAGNESIUM
     Dosage: 20 MG, DAILY
     Route: 048
  3. FLUOXETINE [Concomitant]
     Active Substance: FLUOXETINE\FLUOXETINE HYDROCHLORIDE
  4. MEVACOR [Suspect]
     Active Substance: LOVASTATIN
     Dosage: 20 MG, QD
     Route: 048
     Dates: end: 201403
  5. CHOLECALCIFEROL [Concomitant]
     Active Substance: CHOLECALCIFEROL
  6. ALLOPURINOL. [Concomitant]
     Active Substance: ALLOPURINOL
     Dosage: 300 MG, DAILY
     Route: 048
  7. MILK THISTLE [Suspect]
     Active Substance: MILK THISTLE
     Indication: ROUTINE HEALTH MAINTENANCE
     Dosage: 20 MG, QD WITH A MEAL/ AT A DOSE AND FREQUENCY THAT WAS ^WHAT WAS CALLED FOR ON THE BOTTLE^
     Route: 048
     Dates: start: 201403, end: 201403
  8. ALDACTONE [Concomitant]
     Active Substance: SPIRONOLACTONE
     Dosage: 50 MG, DAILY
     Route: 048
  9. ASPIRIN. [Concomitant]
     Active Substance: ASPIRIN
     Dosage: 81 MG, QD
     Route: 048
  10. OMEGA-3 MARINE TRIGLYCERIDES [Concomitant]
     Active Substance: FISH OIL
     Dosage: 1000MG DAILY

REACTIONS (18)
  - Fall [Unknown]
  - Hypothyroidism [Unknown]
  - Normochromic normocytic anaemia [Unknown]
  - Depression [Unknown]
  - Paralysis [Recovered/Resolved]
  - Portal hypertension [Unknown]
  - Hypertension [Unknown]
  - Restrictive pulmonary disease [Unknown]
  - Cervical spinal stenosis [Unknown]
  - Dizziness [Unknown]
  - Herbal interaction [Unknown]
  - Orthostatic hypotension [Unknown]
  - Hyperlipidaemia [Unknown]
  - Dehydration [Unknown]
  - Nausea [Recovered/Resolved]
  - Hypotension [Unknown]
  - Gastrooesophageal reflux disease [Unknown]
  - Ulnar neuritis [Unknown]

NARRATIVE: CASE EVENT DATE: 201403
